FAERS Safety Report 5176570-5 (Version None)
Quarter: 2006Q4

REPORT INFORMATION
  Report Type: 
  Country: None (occurrence: None)
  Receive Date: 20061207
  Receipt Date: 20061127
  Transmission Date: 20070319
  Serious: Yes (Hospitalization)
  Sender: FDA-Public Use
  Company Number: 2006086156

PATIENT
  Age: 74 Year
  Sex: Female
  Weight: 67 kg

DRUGS (12)
  1. SUTENT [Suspect]
     Indication: RENAL CELL CARCINOMA STAGE UNSPECIFIED
     Dosage: 37.5 MG (37.5 MG,1 IN 1 D), ORAL
     Route: 048
     Dates: start: 20060621
  2. ALLOPURINOL [Concomitant]
  3. PHYSIOTENS (MOXONIDINE) [Concomitant]
  4. COKENZEN (CANDESARTAN CILEXETIL, HYDROCHLOROTHIAZIDE) [Concomitant]
  5. VALACYCLOVIR HCL [Concomitant]
  6. PROPOFAN (CAFFEINE, CARBASALATE CALCIUM, CHLORPHENAMINE MALEATE, DEXTR [Concomitant]
  7. SMECTITE [Concomitant]
  8. CAPERGYL (DIHYDROERGOTOXINE MESILATE) [Concomitant]
  9. ACETAMINOPHEN W/ PROPOXYPHENE HCL [Concomitant]
  10. CRESTOR [Concomitant]
  11. LANSOPRAZOLE [Concomitant]
  12. VOLTAREN [Concomitant]

REACTIONS (1)
  - MALAISE [None]
